FAERS Safety Report 12574604 (Version 1)
Quarter: 2016Q3

REPORT INFORMATION
  Report Type: Spontaneous
  Country: US (occurrence: US)
  Receive Date: 20160720
  Receipt Date: 20160720
  Transmission Date: 20161109
  Serious: No
  Sender: FDA-Public Use
  Company Number: US-ASTELLAS-2012US001901

PATIENT
  Sex: Male

DRUGS (1)
  1. VESICARE [Suspect]
     Active Substance: SOLIFENACIN SUCCINATE
     Indication: PRODUCT USED FOR UNKNOWN INDICATION
     Route: 048
     Dates: start: 201202

REACTIONS (5)
  - Micturition urgency [Unknown]
  - Parkinson^s disease [Unknown]
  - Nocturia [Unknown]
  - Dizziness [Unknown]
  - Adverse event [Unknown]

NARRATIVE: CASE EVENT DATE: 201202
